FAERS Safety Report 10162433 (Version 1)
Quarter: 2014Q2

REPORT INFORMATION
  Report Type: Spontaneous
  Country: US (occurrence: US)
  Receive Date: 20140509
  Receipt Date: 20140509
  Transmission Date: 20141212
  Serious: No
  Sender: FDA-Public Use
  Company Number: US-GLAXOSMITHKLINE-A1020648A

PATIENT
  Sex: Female

DRUGS (4)
  1. ALTABAX [Suspect]
     Indication: SKIN LESION
     Route: 061
     Dates: end: 20130404
  2. BACTROBAN [Suspect]
     Indication: PRODUCT USED FOR UNKNOWN INDICATION
     Route: 061
  3. HYDROCORTISONE [Suspect]
     Dosage: 2.5PCT SINGLE DOSE
  4. HYDROCORTISONE [Concomitant]

REACTIONS (5)
  - Hypersensitivity [Recovered/Resolved]
  - Application site papules [Recovered/Resolved]
  - Application site vesicles [Recovered/Resolved]
  - Application site erythema [Recovered/Resolved]
  - Application site warmth [Recovered/Resolved]
